FAERS Safety Report 6195495-X (Version None)
Quarter: 2009Q2

REPORT INFORMATION
  Report Type: 
  Country: None (occurrence: None)
  Receive Date: 20090519
  Receipt Date: 20090517
  Transmission Date: 20091009
  Serious: Yes (Death)
  Sender: FDA-Public Use
  Company Number: JP-ABBOTT-09P-087-0573277-00

PATIENT
  Age: 85 Year
  Sex: Male

DRUGS (7)
  1. LEUPLIN SR FOR INJECTION 11.25 MG [Suspect]
     Indication: PROSTATE CANCER STAGE IV
     Route: 058
     Dates: start: 20060919, end: 20070821
  2. CASODEX [Concomitant]
     Indication: PROSTATE CANCER STAGE IV
     Route: 048
     Dates: end: 20071016
  3. NORVASC [Concomitant]
     Indication: HYPERTENSION
     Route: 048
     Dates: end: 20071016
  4. ITOROL [Concomitant]
     Indication: HYPERTENSION
     Route: 048
     Dates: end: 20071016
  5. GASTER D [Concomitant]
     Indication: GASTRIC ULCER
     Route: 048
     Dates: end: 20071016
  6. SELBEX [Concomitant]
     Indication: GASTRITIS
     Route: 048
     Dates: end: 20071016
  7. LIPITOR [Concomitant]
     Indication: HYPERLIPIDAEMIA
     Route: 048
     Dates: end: 20071016

REACTIONS (1)
  - PROSTATE CANCER [None]
